FAERS Safety Report 24685794 (Version 1)
Quarter: 2024Q4

REPORT INFORMATION
  Report Type: Spontaneous
  Country: US (occurrence: None)
  Receive Date: 20241129
  Receipt Date: 20241129
  Transmission Date: 20250115
  Serious: Yes (Hospitalization)
  Sender: Public
  Company Number: None

PATIENT
  Sex: Female

DRUGS (2)
  1. AMBRISENTAN [Suspect]
     Active Substance: AMBRISENTAN
     Indication: Pulmonary hypertension
     Dosage: FREQUENCY : DAILY;?OTHER ROUTE : G-TUBE;?
     Route: 050
     Dates: start: 202410
  2. TADLIQ [Suspect]
     Active Substance: TADALAFIL
     Dosage: FREQUENCY : DAILY;?OTHER ROUTE : G-TUBE;?
     Route: 050
     Dates: start: 202406

REACTIONS (1)
  - Cerebral cyst [None]
